FAERS Safety Report 8876259 (Version 1)
Quarter: 2012Q4

REPORT INFORMATION
  Report Type: 
  Country: US (occurrence: US)
  Receive Date: 20121023
  Receipt Date: 20121023
  Transmission Date: 20130627
  Serious: No
  Sender: FDA-Public Use
  Company Number: US-009507513-1210USA009741

PATIENT

DRUGS (1)
  1. ZOCOR [Suspect]
     Indication: BLOOD CHOLESTEROL INCREASED
     Dosage: UNK
     Route: 048
     Dates: start: 2008

REACTIONS (3)
  - Dyskinesia [Recovered/Resolved]
  - Drug ineffective [Recovered/Resolved]
  - Myalgia [Recovering/Resolving]
